FAERS Safety Report 8496509-4 (Version None)
Quarter: 2012Q3

REPORT INFORMATION
  Report Type: 
  Country: None (occurrence: None)
  Receive Date: 20120709
  Receipt Date: 20120628
  Transmission Date: 20120928
  Serious: Yes (Death, Hospitalization)
  Sender: FDA-Public Use
  Company Number: US-ACTELION-A-NJ2012-66451

PATIENT

DRUGS (3)
  1. SILDENAFIL [Concomitant]
  2. EPOPROSTENOL SODIUM [Suspect]
     Indication: PULMONARY ARTERIAL HYPERTENSION
     Dosage: 12 NG/KG, PER MIN
     Route: 041
     Dates: start: 20120514, end: 20120628
  3. ASPIRIN [Concomitant]

REACTIONS (5)
  - GASTROINTESTINAL HAEMORRHAGE [None]
  - FAECES DISCOLOURED [None]
  - VOMITING [None]
  - DEATH [None]
  - PARAESTHESIA [None]
